FAERS Safety Report 5030124-X (Version None)
Quarter: 2006Q2

REPORT INFORMATION
  Report Type: 
  Country: None (occurrence: None)
  Receive Date: 20060614
  Receipt Date: 20060526
  Transmission Date: 20061013
  Serious: Yes (Hospitalization)
  Sender: FDA-Public Use
  Company Number: ES200606001261

PATIENT
  Age: 25 Year
  Sex: Male

DRUGS (3)
  1. ZYPREXA [Suspect]
     Indication: OBSESSIVE-COMPULSIVE DISORDER
     Dosage: 30 MG, DAILY (1/D), ORAL
     Route: 049
     Dates: start: 20050501, end: 20051201
  2. AKINETON FOR INJECTION (BIPERIDEN LACTATE) [Concomitant]
  3. LEXATIN (BROMAZEPAM) [Concomitant]

REACTIONS (4)
  - DYSPRAXIA [None]
  - LARYNGEAL DISORDER [None]
  - NERVOUSNESS [None]
  - SPEECH DISORDER [None]
